FAERS Safety Report 8523006-X (Version None)
Quarter: 2012Q3

REPORT INFORMATION
  Report Type: 
  Country: None (occurrence: None)
  Receive Date: 20120720
  Receipt Date: 20120710
  Transmission Date: 20120928
  Serious: Yes (Hospitalization)
  Sender: FDA-Public Use
  Company Number: JP-SP-2012-06736

PATIENT
  Age: 78 Year
  Sex: Female
  Weight: 34 kg

DRUGS (1)
  1. IMMUCYST [Suspect]
     Indication: BLADDER CANCER
     Route: 043
     Dates: start: 20120321, end: 20120411

REACTIONS (4)
  - REITER'S SYNDROME [None]
  - ARTHRALGIA [None]
  - CONJUNCTIVITIS [None]
  - PYREXIA [None]
